FAERS Safety Report 12326364 (Version 1)
Quarter: 2016Q2

REPORT INFORMATION
  Report Type: Spontaneous
  Country: US (occurrence: None)
  Receive Date: 20160502
  Receipt Date: 20160502
  Transmission Date: 20160815
  Serious: Yes (Hospitalization)
  Sender: FDA-Public Use
  Company Number: None

PATIENT
  Age: 39 Year
  Sex: Female
  Weight: 60.78 kg

DRUGS (8)
  1. SERTRALINE [Concomitant]
     Active Substance: SERTRALINE HYDROCHLORIDE
  2. GABAPENTIN. [Concomitant]
     Active Substance: GABAPENTIN
  3. TOPIRAMATE. [Concomitant]
     Active Substance: TOPIRAMATE
  4. SUVOREXANT. [Suspect]
     Active Substance: SUVOREXANT
     Indication: INSOMNIA
     Route: 048
     Dates: start: 20160328, end: 20160429
  5. ACTIGALL [Concomitant]
     Active Substance: URSODIOL
  6. ARIPIPRAZOLE. [Concomitant]
     Active Substance: ARIPIPRAZOLE
  7. COLACE [Concomitant]
     Active Substance: DOCUSATE SODIUM
  8. BUPROPION. [Concomitant]
     Active Substance: BUPROPION

REACTIONS (4)
  - Abdominal pain [None]
  - Vomiting [None]
  - Nausea [None]
  - Small intestinal obstruction [None]

NARRATIVE: CASE EVENT DATE: 20160421
